FAERS Safety Report 5308261-1 (Version None)
Quarter: 2007Q2

REPORT INFORMATION
  Report Type: 
  Country: None (occurrence: None)
  Receive Date: 20070426
  Receipt Date: 20070416
  Transmission Date: 20071010
  Serious: Yes (Hospitalization)
  Sender: FDA-Public Use
  Company Number: US-ELI_LILLY_AND_COMPANY-US200704003363

PATIENT
  Age: 80 Year
  Sex: Female

DRUGS (3)
  1. FORTEO [Suspect]
     Indication: OSTEOPOROSIS
     Dates: end: 20060501
  2. FORTEO [Suspect]
     Dates: start: 20070106
  3. METAMUCIL [Concomitant]
     Indication: CONSTIPATION

REACTIONS (6)
  - CONSTIPATION [None]
  - DIARRHOEA [None]
  - FALL [None]
  - FEMUR FRACTURE [None]
  - MUSCLE SPASMS [None]
  - PAIN IN EXTREMITY [None]
